FAERS Safety Report 5976329-2 (Version None)
Quarter: 2008Q4

REPORT INFORMATION
  Report Type: 
  Country: None (occurrence: None)
  Receive Date: 20081202
  Receipt Date: 20081126
  Transmission Date: 20090506
  Serious: Yes (Other)
  Sender: FDA-Public Use
  Company Number: BR-ROXANE LABORATORIES, INC.-2008-RO-00303RO

PATIENT
  Age: 78 Year
  Sex: Female

DRUGS (5)
  1. TAMOXIFEN CITRATE [Suspect]
     Indication: BREAST CANCER
  2. LISINOPRIL [Suspect]
     Indication: HYPERTENSION
  3. ANTI-INFLAMMATORY (NSAI) [Suspect]
  4. HYDROXIZINE [Concomitant]
     Indication: PSEUDOLYMPHOMA
     Dosage: 25MG
  5. DESONIDE [Concomitant]
     Indication: PSEUDOLYMPHOMA
     Route: 061

REACTIONS (1)
  - PSEUDOLYMPHOMA [None]
